FAERS Safety Report 24049890 (Version 1)
Quarter: 2024Q3

REPORT INFORMATION
  Report Type: Spontaneous
  Country: FR (occurrence: FR)
  Receive Date: 20240704
  Receipt Date: 20240704
  Transmission Date: 20241017
  Serious: Yes (Other)
  Sender: TEVA
  Company Number: None

PATIENT
  Age: 52 Year
  Sex: Female
  Weight: 80 kg

DRUGS (3)
  1. PREGABALIN [Suspect]
     Active Substance: PREGABALIN
     Indication: Product used for unknown indication
     Route: 065
     Dates: start: 2021, end: 2023
  2. PROZAC [Suspect]
     Active Substance: FLUOXETINE HYDROCHLORIDE
     Indication: Product used for unknown indication
     Route: 065
     Dates: start: 2018
  3. ABILIFY [Suspect]
     Active Substance: ARIPIPRAZOLE
     Indication: Product used for unknown indication
     Route: 065
     Dates: start: 2016

REACTIONS (1)
  - Hypogammaglobulinaemia [Not Recovered/Not Resolved]

NARRATIVE: CASE EVENT DATE: 20210906
